FAERS Safety Report 5527639-4 (Version None)
Quarter: 2007Q4

REPORT INFORMATION
  Report Type: 
  Country: None (occurrence: None)
  Receive Date: 20071123
  Receipt Date: 20071109
  Transmission Date: 20080405
  Serious: Yes (Death)
  Sender: FDA-Public Use
  Company Number: 16260

PATIENT
  Age: 68 Year
  Sex: Female

DRUGS (5)
  1. CYTARABINE [Suspect]
     Indication: ACUTE MYELOID LEUKAEMIA
     Dosage: 37 MG QD SC
     Route: 058
     Dates: start: 20070319, end: 20070327
  2. CEFTAZIDIME [Concomitant]
  3. AMPHOTERICIN. MFR: NOT SPECIFIED [Concomitant]
  4. METOCLOPRAMIDE [Concomitant]
  5. POTASSIUM CHLORIDE [Concomitant]

REACTIONS (12)
  - ANAEMIA [None]
  - AUTOIMMUNE DISORDER [None]
  - BLOOD BILIRUBIN UNCONJUGATED INCREASED [None]
  - DISSEMINATED INTRAVASCULAR COAGULATION [None]
  - FREE HAEMOGLOBIN PRESENT [None]
  - HAEMODIALYSIS [None]
  - HAEMOGLOBINURIA [None]
  - HYPERTHERMIA [None]
  - MULTI-ORGAN FAILURE [None]
  - RENAL FAILURE ACUTE [None]
  - RETICULOCYTOSIS [None]
  - TOXIC SHOCK SYNDROME [None]
